FAERS Safety Report 5840938-1 (Version None)
Quarter: 2008Q3

REPORT INFORMATION
  Report Type: 
  Country: None (occurrence: None)
  Receive Date: 20080731
  Receipt Date: 20080624
  Transmission Date: 20090109
  Serious: Yes (Hospitalization)
  Sender: FDA-Public Use
  Company Number: US200806005418

PATIENT
  Age: 59 Year
  Sex: Female

DRUGS (15)
  1. BYETTA [Suspect]
     Indication: TYPE 2 DIABETES MELLITUS
     Dosage: 10 UG, 2/D, SUBCUTANEOUS
     Route: 058
  2. EXENATIDE 10MCG PEN, DISPOSABLE DEVICE (EXENATIDE PEN (10MCG)) PEN,DIS [Concomitant]
  3. GLYNASE [Concomitant]
  4. NEXIUM [Concomitant]
  5. SYNTHROID [Concomitant]
  6. LISINOPRIL [Concomitant]
  7. ALLEGRA [Concomitant]
  8. ASPIRIN [Concomitant]
  9. VITAMINS NOS (VITAMINS NOS) [Concomitant]
  10. LASIX [Concomitant]
  11. CELEBREX [Concomitant]
  12. NASACORT [Concomitant]
  13. TRICOR [Concomitant]
  14. FORTICOL (DEANOL ACEGLUMATE, HEPTAMINOL HYDROCHLORIDE) [Concomitant]
  15. CALCIUM D (ASCORBIC ACID, CALCIUM GLUCONATE, CALCIUM LACTATE, CALCIUM [Concomitant]

REACTIONS (1)
  - PANCREATITIS [None]
